FAERS Safety Report 20849089 (Version 1)
Quarter: 2022Q2

REPORT INFORMATION
  Report Type: Report from Study
  Country: DE (occurrence: DE)
  Receive Date: 20220519
  Receipt Date: 20220519
  Transmission Date: 20220721
  Serious: Yes (Hospitalization)
  Sender: FDA-Public Use
  Company Number: DE-TEVA-2022-DE-2014730

PATIENT
  Age: 56 Year
  Sex: Female
  Weight: 110 kg

DRUGS (13)
  1. COPAXONE [Suspect]
     Active Substance: GLATIRAMER ACETATE
     Indication: Multiple sclerosis
     Dosage: 20 MILLIGRAM DAILY;
     Route: 058
     Dates: start: 20080423
  2. CHOLECALCIFEROL [Concomitant]
     Active Substance: CHOLECALCIFEROL
     Dosage: 20.000 IE (1-0-0-0; NOT DAILY),
  3. CYMBALTA [Concomitant]
     Active Substance: DULOXETINE HYDROCHLORIDE
     Dosage: (1-0-0-0, DAILY),
  4. DALFAMPRIDINE [Concomitant]
     Active Substance: DALFAMPRIDINE
     Indication: Multiple sclerosis
     Dosage: 1-0-1-0, DAILY
     Route: 048
     Dates: start: 20190701
  5. INDAPAMIDE [Concomitant]
     Active Substance: INDAPAMIDE
     Dosage: 2.5 MG (1-0-0-0, DAILY)
  6. METAMIZOL [Concomitant]
     Active Substance: METAMIZOLE SODIUM
     Dosage: (1-1-1-0, DAILY)
  7. MIRTAZAPINE [Concomitant]
     Active Substance: MIRTAZAPINE
     Dosage: 30 MG (0-0-1-0, DAILY),
  8. PANTOPRAZOLE SODIUM [Concomitant]
     Active Substance: PANTOPRAZOLE SODIUM
     Dosage: 20 MG (1-0-0-0, DAILY)
  9. SITAGLIPTIN PHOSPHATE [Concomitant]
     Active Substance: SITAGLIPTIN PHOSPHATE
     Dosage: 100 MG (1-0-0-0, DAILY)
  10. NALOXONE HYDROCHLORIDE\TILIDINE HYDROCHLORIDE [Concomitant]
     Active Substance: NALOXONE HYDROCHLORIDE\TILIDINE HYDROCHLORIDE
     Dosage: 50/4MG (1-0-1-0, DAILY),
  11. LOPERAMIDE [Concomitant]
     Active Substance: LOPERAMIDE
     Dosage: (AS REQUIRED)
  12. NIFEDIPINE [Concomitant]
     Active Substance: NIFEDIPINE
     Dosage: 10 MG (AS REQUIRED
  13. ACETAMINOPHEN [Concomitant]
     Active Substance: ACETAMINOPHEN
     Dosage: 500 MG (AS REQUIRED)

REACTIONS (5)
  - Humerus fracture [Recovered/Resolved]
  - Scapula fracture [Unknown]
  - Fall [Recovered/Resolved]
  - Hypokinesia [Unknown]
  - Pain [Unknown]

NARRATIVE: CASE EVENT DATE: 20210905
